FAERS Safety Report 13125715 (Version 1)
Quarter: 2017Q1

REPORT INFORMATION
  Report Type: Spontaneous
  Country: US (occurrence: US)
  Receive Date: 20170118
  Receipt Date: 20170118
  Transmission Date: 20170428
  Serious: Yes (Other)
  Sender: FDA-Public Use
  Company Number: US-VIIV HEALTHCARE LIMITED-US2017GSK005931

PATIENT
  Sex: Female

DRUGS (5)
  1. ZIDOVUDINE + LAMIVUDINE [Suspect]
     Active Substance: LAMIVUDINE\ZIDOVUDINE
     Indication: HIV INFECTION
     Route: 064
  2. NEVIRAPINE. [Suspect]
     Active Substance: NEVIRAPINE
     Indication: HIV INFECTION
  3. RALTEGRAVIR. [Suspect]
     Active Substance: RALTEGRAVIR
     Indication: HIV INFECTION
     Route: 064
  4. LOPINAVIR+RITONAVIR [Suspect]
     Active Substance: LOPINAVIR\RITONAVIR
     Indication: HIV INFECTION
     Route: 064
  5. ZIDOVUDINE + LAMIVUDINE [Suspect]
     Active Substance: LAMIVUDINE\ZIDOVUDINE
     Indication: HIV INFECTION

REACTIONS (10)
  - Foetal exposure during pregnancy [Unknown]
  - Product supply issue [Unknown]
  - Developmental delay [Unknown]
  - Gait disturbance [Unknown]
  - Parotid gland enlargement [Unknown]
  - Pneumocystis jirovecii pneumonia [Unknown]
  - Live birth [Unknown]
  - Speech disorder developmental [Unknown]
  - Lymphadenopathy [Unknown]
  - Cardiac murmur [Unknown]
